FAERS Safety Report 8443823-4 (Version None)
Quarter: 2012Q2

REPORT INFORMATION
  Report Type: 
  Country: None (occurrence: None)
  Receive Date: 20120323
  Receipt Date: 20110810
  Transmission Date: 20120825
  Serious: Yes (Hospitalization)
  Sender: FDA-Public Use
  Company Number: 163-21880-11061667

PATIENT
  Age: 77 Year
  Sex: Male

DRUGS (4)
  1. REVLIMID [Suspect]
     Indication: MULTIPLE MYELOMA
     Dosage: 10 MG, QD, X 21 DAYS, PO
     Route: 048
     Dates: start: 20110513, end: 20110612
  2. PROPRANOLOL [Concomitant]
  3. SIMVASTATIN [Concomitant]
  4. WARFARIN SODIUM [Concomitant]

REACTIONS (1)
  - TACHYCARDIA [None]
